FAERS Safety Report 16061102 (Version 1)
Quarter: 2019Q1

REPORT INFORMATION
  Report Type: Spontaneous
  Country: US (occurrence: US)
  Receive Date: 20190312
  Receipt Date: 20190312
  Transmission Date: 20190418
  Serious: No
  Sender: FDA-Public Use
  Company Number: US-ROCHE-2131256

PATIENT
  Sex: Male

DRUGS (1)
  1. AVASTIN [Suspect]
     Active Substance: BEVACIZUMAB
     Indication: DIABETIC RETINOPATHY
     Route: 031

REACTIONS (5)
  - Eye pain [Unknown]
  - Eye swelling [Unknown]
  - Ocular hyperaemia [Unknown]
  - Intentional product use issue [Unknown]
  - Off label use [Unknown]
